FAERS Safety Report 22266575 (Version 2)
Quarter: 2023Q2

REPORT INFORMATION
  Report Type: Spontaneous
  Country: US (occurrence: US)
  Receive Date: 20230428
  Receipt Date: 20230621
  Transmission Date: 20230722
  Serious: Yes (Other)
  Sender: FDA-Public Use
  Company Number: US-JNJFOC-20230454400

PATIENT
  Age: 37 Year
  Sex: Female

DRUGS (2)
  1. ZYRTEC [Suspect]
     Active Substance: CETIRIZINE HYDROCHLORIDE
     Indication: Hypersensitivity
     Dosage: ONE PILL. ONCE DAILY.
     Route: 048
     Dates: start: 20210606, end: 20230202
  2. ZYRTEC [Suspect]
     Active Substance: CETIRIZINE HYDROCHLORIDE
     Indication: Cystitis noninfective

REACTIONS (7)
  - Drug dependence [Recovering/Resolving]
  - Off label use [Unknown]
  - Wrong technique in product usage process [Recovering/Resolving]
  - Seborrhoeic dermatitis [Recovered/Resolved]
  - Withdrawal syndrome [Recovering/Resolving]
  - Alopecia [Recovered/Resolved]
  - Therapeutic response unexpected [Unknown]

NARRATIVE: CASE EVENT DATE: 20210606
